FAERS Safety Report 5626523-5 (Version None)
Quarter: 2008Q1

REPORT INFORMATION
  Report Type: 
  Country: None (occurrence: None)
  Receive Date: 20080214
  Receipt Date: 20080212
  Transmission Date: 20080703
  Serious: Yes (Other)
  Sender: FDA-Public Use
  Company Number: US-ASTRAZENECA-2008UW01094

PATIENT
  Age: 57 Year
  Sex: Female
  Weight: 70.3 kg

DRUGS (9)
  1. ARIMIDEX [Suspect]
     Indication: BREAST CANCER
     Route: 048
     Dates: start: 20071121, end: 20071205
  2. ARIMIDEX [Suspect]
     Route: 048
     Dates: start: 20071215
  3. ARIMIDEX [Suspect]
     Route: 048
     Dates: start: 20080123
  4. LEVOXYL [Concomitant]
  5. ATENOLOL [Concomitant]
  6. ZETIA [Concomitant]
  7. KEFLEX [Concomitant]
  8. KLONOPIN [Concomitant]
  9. VICODIN [Concomitant]

REACTIONS (6)
  - ARTHRALGIA [None]
  - DYSPNOEA [None]
  - ESCHERICHIA URINARY TRACT INFECTION [None]
  - MUSCLE TIGHTNESS [None]
  - SURGERY [None]
  - URINARY TRACT PAIN [None]
